FAERS Safety Report 12328917 (Version 1)
Quarter: 2016Q2

REPORT INFORMATION
  Report Type: Spontaneous
  Country: CH (occurrence: CH)
  Receive Date: 20160503
  Receipt Date: 20160503
  Transmission Date: 20160815
  Serious: Yes (Hospitalization)
  Sender: FDA-Public Use
  Company Number: CH-JNJFOC-20160425702

PATIENT
  Age: 82 Year
  Sex: Male

DRUGS (15)
  1. NEXIUM [Concomitant]
     Active Substance: ESOMEPRAZOLE MAGNESIUM
     Route: 048
  2. LISITRIL [Concomitant]
     Active Substance: LISINOPRIL
     Route: 048
  3. METOPROLOL SUCCINATE. [Concomitant]
     Active Substance: METOPROLOL SUCCINATE
     Route: 048
  4. LUCRIN [Concomitant]
     Active Substance: LEUPROLIDE ACETATE
     Indication: PROSTATE CANCER RECURRENT
     Route: 048
     Dates: start: 201305
  5. ZYTIGA [Suspect]
     Active Substance: ABIRATERONE ACETATE
     Indication: PROSTATE CANCER RECURRENT
     Route: 048
     Dates: start: 201305, end: 20140516
  6. METOPROLOL SUCCINATE. [Concomitant]
     Active Substance: METOPROLOL SUCCINATE
     Route: 048
  7. NITRODERM [Concomitant]
     Active Substance: NITROGLYCERIN
     Route: 062
  8. ASPIRIN CARDIO [Concomitant]
     Active Substance: ASPIRIN
     Route: 048
  9. TOREM [Suspect]
     Active Substance: TORSEMIDE
     Indication: CARDIAC FAILURE
     Route: 048
  10. PREDNISONE. [Suspect]
     Active Substance: PREDNISONE
     Indication: PROSTATE CANCER RECURRENT
     Route: 048
     Dates: start: 201305, end: 201405
  11. TOREM [Suspect]
     Active Substance: TORSEMIDE
     Indication: CARDIAC FAILURE
     Route: 048
  12. SINTROM [Concomitant]
     Active Substance: ACENOCOUMAROL
     Dosage: LONG TERM DURATION OF USE
     Route: 048
  13. LASIX [Suspect]
     Active Substance: FUROSEMIDE
     Indication: PROSTATE CANCER
     Route: 048
     Dates: start: 20130509, end: 201405
  14. PRAVASTATIN [Concomitant]
     Active Substance: PRAVASTATIN\PRAVASTATIN SODIUM
     Route: 048
  15. CALCIMAGON D3 [Concomitant]
     Active Substance: CALCIUM\CHOLECALCIFEROL
     Route: 048

REACTIONS (3)
  - Cardiac failure [Recovered/Resolved]
  - Hypokalaemia [Recovered/Resolved]
  - Pneumonia [Unknown]

NARRATIVE: CASE EVENT DATE: 20140509
